FAERS Safety Report 8409907-1 (Version None)
Quarter: 2012Q2

REPORT INFORMATION
  Report Type: 
  Country: None (occurrence: None)
  Receive Date: 20120529
  Receipt Date: 20120517
  Transmission Date: 20120825
  Serious: Yes (Other)
  Sender: FDA-Public Use
  Company Number: US-JNJFOC-20120515854

PATIENT
  Age: 77 Year
  Sex: Male

DRUGS (1)
  1. DACOGEN [Suspect]
     Indication: ACUTE MYELOID LEUKAEMIA
     Dosage: 38 MG, 1 IN 1 D, INTRAVENOUS
     Route: 042
     Dates: start: 20120512

REACTIONS (1)
  - BLOOD URINE PRESENT [None]
